FAERS Safety Report 5765748-5 (Version None)
Quarter: 2008Q2

REPORT INFORMATION
  Report Type: 
  Country: None (occurrence: None)
  Receive Date: 20080530
  Receipt Date: 20070524
  Transmission Date: 20081010
  Serious: Yes (Hospitalization)
  Sender: FDA-Public Use
  Company Number: 013769

PATIENT
  Age: 36 Year
  Sex: Female

DRUGS (1)
  1. MIRCETTE [Suspect]
     Dosage: ORAL
     Route: 048

REACTIONS (1)
  - CEREBRAL THROMBOSIS [None]
